FAERS Safety Report 12627809 (Version 1)
Quarter: 2016Q3

REPORT INFORMATION
  Report Type: Spontaneous
  Country: US (occurrence: US)
  Receive Date: 20160806
  Receipt Date: 20160806
  Transmission Date: 20161109
  Serious: Yes (Other)
  Sender: FDA-Public Use
  Company Number: US-SUN PHARMACEUTICAL INDUSTRIES LTD-2016US-119320

PATIENT
  Age: 94 Year
  Sex: Male

DRUGS (6)
  1. DEGARELIX [Suspect]
     Active Substance: DEGARELIX
     Indication: HORMONE-REFRACTORY PROSTATE CANCER
     Dosage: UNK
     Route: 065
     Dates: start: 200909, end: 201401
  2. DUTASTERIDE. [Suspect]
     Active Substance: DUTASTERIDE
     Indication: HORMONE-REFRACTORY PROSTATE CANCER
     Route: 065
     Dates: start: 2009
  3. BICALUTAMIDE. [Suspect]
     Active Substance: BICALUTAMIDE
     Indication: HORMONE-REFRACTORY PROSTATE CANCER
     Route: 065
     Dates: start: 2009
  4. ABIRATERONE [Concomitant]
     Active Substance: ABIRATERONE
     Indication: HORMONE-REFRACTORY PROSTATE CANCER
     Route: 065
     Dates: start: 201501
  5. DEGARELIX [Suspect]
     Active Substance: DEGARELIX
     Indication: HORMONE-REFRACTORY PROSTATE CANCER
     Dosage: UNK
     Route: 065
     Dates: start: 201504
  6. PROVENGE [Concomitant]
     Active Substance: SIPULEUCEL-T
     Indication: HORMONE-REFRACTORY PROSTATE CANCER
     Route: 065
     Dates: start: 201201

REACTIONS (1)
  - Hyperadrenalism [Unknown]
